FAERS Safety Report 6580045-6 (Version None)
Quarter: 2010Q1

REPORT INFORMATION
  Report Type: 
  Country: None (occurrence: None)
  Receive Date: 20100212
  Receipt Date: 20100202
  Transmission Date: 20100710
  Serious: Yes (Other)
  Sender: FDA-Public Use
  Company Number: US-WYE-H13393210

PATIENT
  Age: 59 Year
  Sex: Female
  Weight: 111.23 kg

DRUGS (4)
  1. ADVIL PM [Suspect]
     Indication: PAIN IN EXTREMITY
     Dosage: 2 CAPLETS X 1
     Route: 048
     Dates: start: 20100201, end: 20100201
  2. CYMBALTA [Concomitant]
     Indication: NERVOUSNESS
     Dosage: UNKNOWN
     Route: 048
  3. CENTRUM SILVER [Concomitant]
     Dosage: UNKNOWN
     Route: 048
  4. DETROL [Concomitant]
     Indication: HYPERTONIC BLADDER
     Dosage: UNKNOWN
     Route: 048

REACTIONS (11)
  - ABDOMINAL DISCOMFORT [None]
  - FAECES DISCOLOURED [None]
  - FALL [None]
  - HAEMATOCHEZIA [None]
  - HEAD DISCOMFORT [None]
  - LOSS OF CONSCIOUSNESS [None]
  - PRODUCT LABEL ISSUE [None]
  - RASH ERYTHEMATOUS [None]
  - RASH MACULAR [None]
  - RASH PRURITIC [None]
  - SWELLING [None]
